FAERS Safety Report 5766672-4 (Version None)
Quarter: 2008Q2

REPORT INFORMATION
  Report Type: 
  Country: None (occurrence: None)
  Receive Date: 20080612
  Receipt Date: 20080529
  Transmission Date: 20081010
  Serious: Yes (Hospitalization, Other)
  Sender: FDA-Public Use
  Company Number: FR-NOVOPROD-275907

PATIENT

DRUGS (8)
  1. ACTRAPID [Suspect]
     Route: 015
  2. MORPHINE [Concomitant]
     Indication: DRUG EXPOSURE DURING PREGNANCY
  3. MOPRAL                             /00661201/ [Concomitant]
     Indication: DRUG EXPOSURE DURING PREGNANCY
     Dates: start: 20080113, end: 20080120
  4. VITAMINE K [Concomitant]
     Indication: DRUG EXPOSURE DURING PREGNANCY
     Dates: start: 20080113, end: 20080128
  5. OFLOCET                            /00731801/ [Concomitant]
     Indication: DRUG EXPOSURE DURING PREGNANCY
     Dates: start: 20080113, end: 20080128
  6. FLAGYL [Concomitant]
     Indication: DRUG EXPOSURE DURING PREGNANCY
     Dates: start: 20080113, end: 20080119
  7. ATARAX [Concomitant]
     Indication: DRUG EXPOSURE DURING PREGNANCY
     Dates: start: 20080113
  8. LYSANXIA [Concomitant]
     Indication: DRUG EXPOSURE DURING PREGNANCY
     Dates: start: 20080113, end: 20080202

REACTIONS (3)
  - BACTERIAL INFECTION [None]
  - PREMATURE BABY [None]
  - TACHYCARDIA FOETAL [None]
